FAERS Safety Report 8805057 (Version 2)
Quarter: 2012Q4

REPORT INFORMATION
  Report Type: 
  Country: US (occurrence: US)
  Receive Date: 20120924
  Receipt Date: 20121017
  Transmission Date: 20130627
  Serious: Yes (Death, Other)
  Sender: FDA-Public Use
  Company Number: US-ROCHE-1126797

PATIENT
  Sex: Female
  Weight: 79 kg

DRUGS (1)
  1. AVASTIN [Suspect]
     Indication: VAGINAL CANCER
     Route: 042
     Dates: start: 20080110, end: 20080320

REACTIONS (2)
  - Death [Fatal]
  - Disease progression [Unknown]
